FAERS Safety Report 5567715-3 (Version None)
Quarter: 2007Q4

REPORT INFORMATION
  Report Type: 
  Country: None (occurrence: None)
  Receive Date: 20071217
  Receipt Date: 20071206
  Transmission Date: 20080405
  Serious: Yes (Hospitalization)
  Sender: FDA-Public Use
  Company Number: B0499613A

PATIENT
  Age: 22 Year
  Sex: Female

DRUGS (14)
  1. PROCHLORPERAZINE [Suspect]
     Indication: NAUSEA
  2. RANITIDINE HYDROCHLORIDE [Suspect]
     Indication: NAUSEA
     Dosage: 150 MG / TWICE PER DAY
  3. ASPIRIN [Suspect]
  4. PROMETHAZINE [Suspect]
  5. ANTIDEPRESSANT (FORMULATION UNKNOWN) (ANTIDEPRESSANT) [Suspect]
     Indication: DEPRESSION
  6. DIAZEPAM [Suspect]
     Dosage: 2 MG
  7. ZOFRAN [Suspect]
  8. ENOXAPARIN SODIUM [Suspect]
     Indication: PULMONARY EMBOLISM
  9. FLUOXETINE [Suspect]
  10. TRAZODONE HCL [Suspect]
  11. IRON SALT (FORMULATION UNKNOWN) (IRON SALT) [Suspect]
  12. HYDROCODONE (FORMULATION UNKNOWN) (HYDROCODONE) [Suspect]
  13. DIPHENYDRAMINE (FORMULATION UNKNOWN) (DIPHENYDRAMINE) [Suspect]
  14. DOLASETRON (FORMULATION UNKNOWN) (DOLASETRON) [Suspect]

REACTIONS (22)
  - AKATHISIA [None]
  - ANXIETY [None]
  - BLOOD THYROID STIMULATING HORMONE DECREASED [None]
  - COMPRESSION FRACTURE [None]
  - DEHYDRATION [None]
  - DEPRESSION [None]
  - DIZZINESS [None]
  - DYSPHORIA [None]
  - DYSPNOEA [None]
  - FEELING OF BODY TEMPERATURE CHANGE [None]
  - HYPERHIDROSIS [None]
  - HYPOTENSION [None]
  - INTENTIONAL SELF-INJURY [None]
  - MICROCYTIC ANAEMIA [None]
  - MOVEMENT DISORDER [None]
  - NAUSEA [None]
  - OPIATES POSITIVE [None]
  - PALPITATIONS [None]
  - RESTLESSNESS [None]
  - SUICIDAL IDEATION [None]
  - TREMOR [None]
  - VOMITING [None]
